FAERS Safety Report 5679802-X (Version None)
Quarter: 2008Q1

REPORT INFORMATION
  Report Type: 
  Country: None (occurrence: None)
  Receive Date: 20080321
  Receipt Date: 20080305
  Transmission Date: 20080703
  Serious: Yes (Life-Threatening, Hospitalization)
  Sender: FDA-Public Use
  Company Number: 2007EU000803

PATIENT
  Age: 66 Year
  Sex: Female
  Weight: 53 kg

DRUGS (5)
  1. PROGRAF [Suspect]
     Indication: RENAL TRANSPLANT
     Dosage: 1 MG, ORAL
     Route: 048
     Dates: start: 20050101
  2. ATORVASTATIN CALCIUM [Suspect]
     Indication: HYPERCHOLESTEROLAEMIA
     Dosage: 20 MG, ORAL
     Route: 048
     Dates: start: 20050101, end: 20070201
  3. DECORTIN (PREDNISONE) [Concomitant]
  4. CELLCEPT [Concomitant]
  5. BISOPROLOL FUMARATE [Concomitant]

REACTIONS (5)
  - DRUG INTERACTION [None]
  - HEPATIC ENZYME INCREASED [None]
  - PROTEINURIA [None]
  - RHABDOMYOLYSIS [None]
  - URINE ANALYSIS ABNORMAL [None]
